FAERS Safety Report 5399846-5 (Version None)
Quarter: 2007Q3

REPORT INFORMATION
  Report Type: 
  Country: None (occurrence: None)
  Receive Date: 20070730
  Receipt Date: 20070724
  Transmission Date: 20080115
  Serious: Yes (Other)
  Sender: FDA-Public Use
  Company Number: PHEH2007US06255

PATIENT
  Age: 74 Year
  Sex: Female

DRUGS (9)
  1. ZELNORM [Suspect]
     Indication: IMPAIRED GASTRIC EMPTYING
     Dosage: 6 MG, QD
     Route: 048
     Dates: start: 20040915, end: 20070301
  2. VITAMIN E [Concomitant]
  3. PROTONIX [Concomitant]
     Dosage: 40MG QD
  4. REGLAN [Concomitant]
     Dosage: 10MG TID
  5. PREMARIN [Concomitant]
     Dosage: 0.3MG QD
  6. HYDROXYCHLOROQUINE SULFATE [Concomitant]
     Dosage: 200MG UNK
  7. MIRALAX [Concomitant]
     Dosage: QD PRN
  8. INDERAL LA [Concomitant]
     Dosage: 120MG UNK
  9. HYZAAR [Concomitant]
     Dosage: 100/25MG QD

REACTIONS (3)
  - CARDIAC PACEMAKER INSERTION [None]
  - CARDIOVASCULAR DISORDER [None]
  - HEART RATE IRREGULAR [None]
